FAERS Safety Report 13256835 (Version 1)
Quarter: 2017Q1

REPORT INFORMATION
  Report Type: Report from Study
  Country: JP (occurrence: JP)
  Receive Date: 20170221
  Receipt Date: 20170221
  Transmission Date: 20170428
  Serious: Yes (Hospitalization, Other)
  Sender: FDA-Public Use
  Company Number: PHHY2013JP108733

PATIENT
  Age: 41 Year
  Sex: Male
  Weight: 65 kg

DRUGS (32)
  1. VFEND [Concomitant]
     Active Substance: VORICONAZOLE
     Indication: PSEUDOMEMBRANOUS COLITIS
     Dosage: 200 MG, QD
     Route: 048
  2. NEORAL [Concomitant]
     Active Substance: CYCLOSPORINE
     Indication: RENAL TRANSPLANT
     Dosage: 240 MG, QD
     Route: 048
     Dates: end: 20121111
  3. SANDIMMUN [Concomitant]
     Active Substance: CYCLOSPORINE
     Indication: RENAL TRANSPLANT
     Dosage: 100 MG, QD
     Route: 042
     Dates: end: 20121113
  4. SOLU-MEDROL [Concomitant]
     Active Substance: METHYLPREDNISOLONE SODIUM SUCCINATE
     Dosage: 250 MG, QD
     Route: 042
     Dates: start: 20130111, end: 20130113
  5. CERTICAN [Suspect]
     Active Substance: EVEROLIMUS
     Dosage: 1 MG, QD
     Route: 048
     Dates: start: 20121117, end: 20121125
  6. SOL-MELCORT [Concomitant]
     Active Substance: METHYLPREDNISOLONE SODIUM SUCCINATE
     Indication: RENAL TRANSPLANT
     Dosage: 250 MG, UNK
     Route: 042
     Dates: start: 20121212
  7. AZILVA [Concomitant]
     Active Substance: AZILSARTAN KAMEDOXOMIL
     Indication: PRODUCT USED FOR UNKNOWN INDICATION
     Dosage: 20 MG, UNK
     Route: 048
  8. CERTICAN [Suspect]
     Active Substance: EVEROLIMUS
     Dosage: 1.25 MG, QD
     Route: 048
     Dates: start: 20121116, end: 20121116
  9. CERTICAN [Suspect]
     Active Substance: EVEROLIMUS
     Dosage: 1.5 MG, QD
     Route: 048
     Dates: start: 20121127, end: 20130203
  10. CERTICAN [Suspect]
     Active Substance: EVEROLIMUS
     Dosage: 1 MG, QD
     Route: 048
     Dates: start: 20130204
  11. SOLU-MEDROL [Concomitant]
     Active Substance: METHYLPREDNISOLONE SODIUM SUCCINATE
     Dosage: 250 MG, QD
     Route: 042
     Dates: start: 20121212, end: 20121214
  12. VALIXA [Concomitant]
     Active Substance: VALGANCICLOVIR
     Indication: PROPHYLAXIS
     Dosage: 450 MG, QD
     Route: 048
  13. MIZORIBINE [Concomitant]
     Active Substance: MIZORIBINE
     Indication: PRODUCT USED FOR UNKNOWN INDICATION
     Dosage: UNK
     Route: 065
  14. ATELEC [Concomitant]
     Active Substance: CILNIDIPINE
     Indication: PRODUCT USED FOR UNKNOWN INDICATION
     Dosage: 10 MG, UNK
     Route: 048
  15. PARIET [Concomitant]
     Active Substance: RABEPRAZOLE SODIUM
     Indication: PROPHYLAXIS
     Dosage: 10 MG, QD
     Route: 048
  16. CERTICAN [Suspect]
     Active Substance: EVEROLIMUS
     Indication: RENAL TRANSPLANT
     Dosage: 1.5 MG, QD
     Route: 048
     Dates: start: 20121108, end: 20121115
  17. THYMOGLOBULINE [Suspect]
     Active Substance: LAPINE T-LYMPHOCYTE IMMUNE GLOBULIN
     Indication: RENAL TRANSPLANT
     Dosage: 50 MG, QD
     Route: 042
     Dates: start: 20130116, end: 20130122
  18. NEORAL [Concomitant]
     Active Substance: CYCLOSPORINE
     Dosage: 120-240 MG, QD
     Route: 048
     Dates: start: 20121114
  19. SIMULECT [Concomitant]
     Active Substance: BASILIXIMAB
     Dosage: 20 MG, QD
     Route: 048
     Dates: start: 20121116, end: 20121116
  20. PREDONINE [Concomitant]
     Active Substance: PREDNISOLONE
     Indication: RENAL TRANSPLANT
     Dosage: 20 MG, QD
     Route: 042
     Dates: start: 20121113, end: 20121113
  21. AVELOX [Concomitant]
     Active Substance: MOXIFLOXACIN HYDROCHLORIDE
     Indication: PSEUDOMEMBRANOUS COLITIS
     Dosage: 400 MG
     Route: 048
  22. FEBURIC [Concomitant]
     Active Substance: FEBUXOSTAT
     Indication: PRODUCT USED FOR UNKNOWN INDICATION
     Dosage: 20 MG, UNK
     Route: 048
  23. SOL-MELCORT [Concomitant]
     Active Substance: METHYLPREDNISOLONE SODIUM SUCCINATE
     Dosage: 250 MG, UNK
     Route: 042
     Dates: end: 20130113
  24. CERTICAN [Suspect]
     Active Substance: EVEROLIMUS
     Dosage: 1.25 MG, QD
     Route: 048
     Dates: start: 20121126, end: 20121126
  25. MIZORIBINE [Concomitant]
     Active Substance: MIZORIBINE
     Dosage: UNK
     Route: 065
     Dates: start: 20121218
  26. SIMULECT [Concomitant]
     Active Substance: BASILIXIMAB
     Indication: RENAL TRANSPLANT
     Dosage: 20 MG, QD
     Route: 042
     Dates: start: 20121112, end: 20121112
  27. PREDONINE [Concomitant]
     Active Substance: PREDNISOLONE
     Indication: RENAL TRANSPLANT
     Dosage: 5-40 MG, QD
     Route: 048
     Dates: start: 20121114
  28. NEXIUM [Concomitant]
     Active Substance: ESOMEPRAZOLE MAGNESIUM
     Indication: PROPHYLAXIS
     Dosage: 20 MG, QD
     Route: 048
  29. SOLU-MEDROL [Concomitant]
     Active Substance: METHYLPREDNISOLONE SODIUM SUCCINATE
     Indication: RENAL TRANSPLANT
     Dosage: 500 MG, QD
     Route: 042
     Dates: start: 20121112, end: 20121112
  30. BREDININ [Concomitant]
     Active Substance: MIZORIBINE
     Indication: RENAL TRANSPLANT
     Dosage: 100-200 MG, QD
     Route: 048
     Dates: start: 20121114
  31. AVELOX [Concomitant]
     Active Substance: MOXIFLOXACIN HYDROCHLORIDE
     Indication: PROPHYLAXIS
  32. BAKTAR [Concomitant]
     Active Substance: SULFAMETHOXAZOLE\TRIMETHOPRIM
     Indication: PROPHYLAXIS
     Dosage: 1 DF, QD
     Route: 048

REACTIONS (10)
  - Kidney transplant rejection [Recovered/Resolved]
  - Bone marrow failure [Recovering/Resolving]
  - Tubulointerstitial nephritis [Unknown]
  - Renal vasculitis [Unknown]
  - Pseudomembranous colitis [Recovering/Resolving]
  - Diarrhoea [Unknown]
  - Clostridium difficile infection [Unknown]
  - Kidney transplant rejection [Recovered/Resolved]
  - Lymphocytic infiltration [Unknown]
  - Hypertension [Recovering/Resolving]

NARRATIVE: CASE EVENT DATE: 20121115
